FAERS Safety Report 6727996-7 (Version None)
Quarter: 2010Q2

REPORT INFORMATION
  Report Type: 
  Country: None (occurrence: None)
  Receive Date: 20100512
  Receipt Date: 20100426
  Transmission Date: 20101027
  Serious: Yes (Hospitalization, Other)
  Sender: FDA-Public Use
  Company Number: 7002906

PATIENT
  Age: 50 Year
  Sex: Female

DRUGS (1)
  1. REBIF [Suspect]
     Indication: MULTIPLE SCLEROSIS
     Dosage: 44 MCG, SUBCUTANEOUS
     Route: 058
     Dates: start: 20040510, end: 20100126

REACTIONS (10)
  - CONCUSSION [None]
  - CONVULSION [None]
  - DYSARTHRIA [None]
  - DYSKINESIA [None]
  - FALL [None]
  - HYPERTENSION [None]
  - IRON DEFICIENCY [None]
  - MULTIPLE SCLEROSIS RELAPSE [None]
  - MUSCULAR WEAKNESS [None]
  - TREMOR [None]
